FAERS Safety Report 6854990-8 (Version None)
Quarter: 2010Q3

REPORT INFORMATION
  Report Type: 
  Country: None (occurrence: None)
  Receive Date: 20100717
  Receipt Date: 20080707
  Transmission Date: 20110219
  Serious: No
  Sender: FDA-Public Use
  Company Number: US-PFIZER INC-2007107276

PATIENT
  Sex: Male

DRUGS (1)
  1. CHANTIX [Suspect]
     Indication: SMOKING CESSATION THERAPY
     Dates: start: 20071105

REACTIONS (13)
  - BLOOD PRESSURE INCREASED [None]
  - CHILLS [None]
  - DEPRESSION [None]
  - DIARRHOEA [None]
  - DYSPEPSIA [None]
  - FATIGUE [None]
  - GASTROENTERITIS [None]
  - INSOMNIA [None]
  - MYALGIA [None]
  - NAUSEA [None]
  - VIRAL INFECTION [None]
  - VOMITING [None]
  - WEIGHT INCREASED [None]
